FAERS Safety Report 4525124-X (Version None)
Quarter: 2004Q4

REPORT INFORMATION
  Report Type: 
  Country: None (occurrence: None)
  Receive Date: 20041117
  Receipt Date: 20031223
  Transmission Date: 20050328
  Serious: Yes (Other)
  Sender: FDA-Public Use
  Company Number: C2003-3359.01

PATIENT
  Age: 49 Year
  Sex: Male

DRUGS (6)
  1. CLOZAPINE [Suspect]
     Dosage: 600MG Q HS, ORAL
     Route: 048
  2. BENZTROPINE MESYLATE [Concomitant]
  3. DIVALPROEX SODIUM [Concomitant]
  4. LORAZEPAM [Concomitant]
  5. QUETIAPINE [Concomitant]
  6. SERTRALINE [Concomitant]

REACTIONS (2)
  - DRUG EFFECT DECREASED [None]
  - LEUKOPENIA [None]
